FAERS Safety Report 4789453-7 (Version None)
Quarter: 2005Q4

REPORT INFORMATION
  Report Type: 
  Country: None (occurrence: None)
  Receive Date: 20051004
  Receipt Date: 20051004
  Transmission Date: 20060501
  Serious: No
  Sender: FDA-Public Use
  Company Number: None

PATIENT
  Sex: Male

DRUGS (10)
  1. LITHIUM [Suspect]
     Indication: BIPOLAR DISORDER
     Dosage: 300 MG PO BID
     Route: 048
  2. SIROLIMUS [Concomitant]
  3. OMEPRAZOLE [Concomitant]
  4. FOLATE [Concomitant]
  5. B-6 [Concomitant]
  6. VENLAFAXINE [Concomitant]
  7. LOPERIMIDE [Concomitant]
  8. MOM [Concomitant]
  9. INSULIN GLARGINE [Concomitant]
  10. FLUDROCORTISONE [Concomitant]

REACTIONS (4)
  - BLOOD CREATININE INCREASED [None]
  - BLOOD UREA INCREASED [None]
  - COORDINATION ABNORMAL [None]
  - DIZZINESS [None]
